FAERS Safety Report 6070453-4 (Version None)
Quarter: 2009Q1

REPORT INFORMATION
  Report Type: 
  Country: None (occurrence: None)
  Receive Date: 20090209
  Receipt Date: 20090203
  Transmission Date: 20090719
  Serious: Yes (Other)
  Sender: FDA-Public Use
  Company Number: JP-BAYER-200812651BYL

PATIENT
  Age: 80 Year
  Sex: Male
  Weight: 61 kg

DRUGS (10)
  1. NEXAVAR [Suspect]
     Indication: RENAL CELL CARCINOMA STAGE IV
     Dosage: TOTAL DAILY DOSE: 800 MG  UNIT DOSE: 200 MG
     Route: 048
     Dates: start: 20080917, end: 20081020
  2. NEXAVAR [Suspect]
     Dosage: UNIT DOSE: 200 MG
     Route: 048
     Dates: start: 20081201, end: 20081204
  3. NEXAVAR [Suspect]
     Dosage: TOTAL DAILY DOSE: 200 MG  UNIT DOSE: 200 MG
     Route: 048
     Dates: start: 20081215, end: 20090115
  4. PARIET [Concomitant]
     Dosage: TOTAL DAILY DOSE: 10 MG
     Route: 048
     Dates: start: 20030801, end: 20081029
  5. THEO-DUR [Concomitant]
     Dosage: TOTAL DAILY DOSE: 300 MG
     Route: 048
     Dates: start: 20030801, end: 20081029
  6. MUCOSAL [Concomitant]
     Dosage: TOTAL DAILY DOSE: 1 DF
     Route: 048
     Dates: start: 20030801, end: 20081029
  7. MAGMITT [Concomitant]
     Route: 048
     Dates: start: 20030701, end: 20081029
  8. GASMOTIN [Concomitant]
     Route: 048
     Dates: start: 20030701, end: 20081029
  9. PURSENNID [Concomitant]
     Route: 048
     Dates: start: 20030701, end: 20081029
  10. AMOBAN [Concomitant]
     Dosage: TOTAL DAILY DOSE: 7.5 MG
     Route: 048
     Dates: start: 20030701, end: 20081029

REACTIONS (7)
  - BLOOD AMYLASE INCREASED [None]
  - C-REACTIVE PROTEIN INCREASED [None]
  - HEPATIC FUNCTION ABNORMAL [None]
  - LIPASE INCREASED [None]
  - PALMAR-PLANTAR ERYTHRODYSAESTHESIA SYNDROME [None]
  - PLATELET COUNT DECREASED [None]
  - PYREXIA [None]
